FAERS Safety Report 8843112 (Version 3)
Quarter: 2013Q1

REPORT INFORMATION
  Report Type: Spontaneous
  Country: US (occurrence: US)
  Receive Date: 20121016
  Receipt Date: 20130103
  Transmission Date: 20140127
  Serious: No
  Sender: FDA-Public Use
  Company Number: US-ASTRAZENECA-2012SE75742

PATIENT
  Age: 59 Year
  Sex: Female
  Weight: 84.4 kg

DRUGS (8)
  1. SYMBICORT PMDI [Suspect]
     Indication: LUNG DISORDER
     Dosage: UNKNOWN
     Route: 055
  2. CRESTOR [Suspect]
     Indication: BLOOD CHOLESTEROL INCREASED
     Route: 048
  3. HYDROCODONE [Concomitant]
     Indication: BACK PAIN
     Route: 048
  4. SOMA [Concomitant]
     Indication: MUSCLE SPASMS
     Route: 048
  5. BSPAR [Concomitant]
     Indication: ANTIDEPRESSANT THERAPY
     Route: 048
  6. TRYAZONDONE [Concomitant]
     Indication: ANTIDEPRESSANT THERAPY
     Route: 048
  7. TRYAZONDONE [Concomitant]
     Indication: SLEEP DISORDER
     Route: 048
  8. AMBIEN [Concomitant]
     Indication: SLEEP DISORDER
     Route: 048

REACTIONS (3)
  - Pneumonia [Unknown]
  - Chronic obstructive pulmonary disease [Unknown]
  - Intentional drug misuse [Unknown]
